FAERS Safety Report 7650095-7 (Version None)
Quarter: 2011Q3

REPORT INFORMATION
  Report Type: 
  Country: None (occurrence: None)
  Receive Date: 20110802
  Receipt Date: 20110722
  Transmission Date: 20111222
  Serious: Yes (Other)
  Sender: FDA-Public Use
  Company Number: US-ROCHE-679522

PATIENT
  Sex: Female
  Weight: 80.7 kg

DRUGS (22)
  1. ALDACTONE [Concomitant]
  2. MINOCIN [Concomitant]
  3. ACCUTANE [Suspect]
     Route: 065
     Dates: start: 19971210, end: 19980801
  4. CLEOCIN T [Concomitant]
  5. ACCUTANE [Suspect]
     Route: 065
     Dates: start: 19881018, end: 19890301
  6. ACCUTANE [Suspect]
     Route: 065
     Dates: start: 20010101, end: 20010601
  7. AMNESTEEM [Suspect]
     Route: 065
     Dates: start: 20070302, end: 20070402
  8. ACCUTANE [Suspect]
     Route: 065
     Dates: start: 20021001, end: 20030201
  9. ISOTRETINOIN GEL 0.05% [Concomitant]
     Indication: ACNE
     Route: 065
     Dates: start: 20011117, end: 20020309
  10. E-MYCIN [Concomitant]
  11. ACCUTANE [Suspect]
     Route: 065
     Dates: start: 19870119, end: 19870626
  12. ACCUTANE [Suspect]
     Route: 065
     Dates: start: 19900301, end: 19900811
  13. ACCUTANE [Suspect]
     Route: 065
     Dates: start: 19990201, end: 19990801
  14. ACCUTANE [Suspect]
     Route: 065
     Dates: start: 20000401, end: 20001001
  15. RETIN-A [Concomitant]
  16. ACCUTANE [Suspect]
     Route: 065
     Dates: start: 19930505, end: 19931101
  17. ACCUTANE [Suspect]
     Route: 065
     Dates: start: 19970513, end: 19971101
  18. AMNESTEEM [Suspect]
     Dosage: STRENGTH: 40 MG AND 10 MG
     Route: 065
     Dates: start: 20041217, end: 20050719
  19. ACCUTANE [Suspect]
     Route: 065
     Dates: start: 19870807, end: 19880105
  20. ACCUTANE [Suspect]
     Route: 065
     Dates: start: 19880312, end: 19880824
  21. ACCUTANE [Suspect]
     Route: 065
     Dates: start: 20010901, end: 20020301
  22. SOTRET [Suspect]
     Route: 065
     Dates: start: 20070402, end: 20070801

REACTIONS (22)
  - SUNBURN [None]
  - DEPRESSION [None]
  - CHEILITIS [None]
  - RASH [None]
  - ANGIOKERATOMA [None]
  - INTERVERTEBRAL DISC DEGENERATION [None]
  - VARICELLA [None]
  - PARONYCHIA [None]
  - ORAL HERPES [None]
  - INFLAMMATORY BOWEL DISEASE [None]
  - NECK INJURY [None]
  - ALOPECIA [None]
  - BLOOD TRIGLYCERIDES INCREASED [None]
  - COLITIS MICROSCOPIC [None]
  - IMPETIGO [None]
  - INTESTINAL OBSTRUCTION [None]
  - HYPERGLYCAEMIA [None]
  - HAEMANGIOMA OF LIVER [None]
  - XEROSIS [None]
  - DRY SKIN [None]
  - SKIN PAPILLOMA [None]
  - BLOOD CHOLESTEROL INCREASED [None]
